FAERS Safety Report 8442856-1 (Version None)
Quarter: 2012Q2

REPORT INFORMATION
  Report Type: 
  Country: None (occurrence: None)
  Receive Date: 20120615
  Receipt Date: 20120605
  Transmission Date: 20120825
  Serious: No
  Sender: FDA-Public Use
  Company Number: US-ASTRAZENECA-2012SE37547

PATIENT
  Age: 55 Year
  Sex: Male
  Weight: 59 kg

DRUGS (7)
  1. ASPIRIN [Concomitant]
  2. ZOMIG [Suspect]
     Indication: MIGRAINE
     Route: 048
  3. VITAMIN D [Concomitant]
  4. ZOMIG [Suspect]
     Route: 048
  5. LORAZEPAM [Concomitant]
  6. ZOMIG [Suspect]
     Route: 048
  7. ZOMIG [Suspect]
     Route: 048
     Dates: start: 20120526

REACTIONS (4)
  - INTENTIONAL DRUG MISUSE [None]
  - ABDOMINAL PAIN UPPER [None]
  - BLOOD PRESSURE INCREASED [None]
  - NAUSEA [None]
